FAERS Safety Report 12447558 (Version 1)
Quarter: 2016Q2

REPORT INFORMATION
  Report Type: Spontaneous
  Country: US (occurrence: US)
  Receive Date: 20160608
  Receipt Date: 20160608
  Transmission Date: 20160815
  Serious: No
  Sender: FDA-Public Use
  Company Number: US-ENDO PHARMACEUTICALS INC.-2016-001160

PATIENT
  Sex: Female
  Weight: 104.42 kg

DRUGS (3)
  1. OXYMORPHONE HYDROCHLORIDE. [Suspect]
     Active Substance: OXYMORPHONE HYDROCHLORIDE
     Indication: BREAKTHROUGH PAIN
     Route: 048
  2. OXYMORPHONE ER [Suspect]
     Active Substance: OXYMORPHONE
     Route: 048
     Dates: start: 2014, end: 201511
  3. OXYMORPHONE ER [Suspect]
     Active Substance: OXYMORPHONE
     Indication: PAIN
     Route: 048
     Dates: start: 201511

REACTIONS (2)
  - Abdominal distension [Not Recovered/Not Resolved]
  - Drug ineffective [Unknown]

NARRATIVE: CASE EVENT DATE: 2015
